FAERS Safety Report 5126708-0 (Version None)
Quarter: 2006Q4

REPORT INFORMATION
  Report Type: 
  Country: None (occurrence: None)
  Receive Date: 20061013
  Receipt Date: 20061004
  Transmission Date: 20070319
  Serious: Yes (Hospitalization)
  Sender: FDA-Public Use
  Company Number: 2006UW19207

PATIENT
  Age: 49 Year
  Sex: Female
  Weight: 108.9 kg

DRUGS (4)
  1. ATACAND [Suspect]
     Indication: HYPERTENSION
     Route: 048
     Dates: end: 20060401
  2. ATACAND [Suspect]
     Route: 048
  3. ACIPHEX [Concomitant]
  4. LORAZEPAM [Concomitant]
     Indication: ANXIETY

REACTIONS (9)
  - ANXIETY [None]
  - DIZZINESS [None]
  - DYSPNOEA [None]
  - GASTRIC DISORDER [None]
  - LARYNGEAL DISORDER [None]
  - LARYNGEAL OEDEMA [None]
  - MUSCLE DISORDER [None]
  - URTICARIA [None]
  - VISION BLURRED [None]
